FAERS Safety Report 8320797-8 (Version None)
Quarter: 2012Q2

REPORT INFORMATION
  Report Type: 
  Country: None (occurrence: None)
  Receive Date: 20120430
  Receipt Date: 20120423
  Transmission Date: 20120825
  Serious: Yes (Other)
  Sender: FDA-Public Use
  Company Number: PHHY2012ES022071

PATIENT

DRUGS (2)
  1. AZATIOPRIN [Concomitant]
     Dosage: UNK
  2. EXJADE [Suspect]
     Indication: IRON OVERLOAD

REACTIONS (1)
  - APLASIA [None]
